FAERS Safety Report 6482005-2 (Version None)
Quarter: 2009Q4

REPORT INFORMATION
  Report Type: 
  Country: None (occurrence: None)
  Receive Date: 20091208
  Receipt Date: 20090408
  Transmission Date: 20100525
  Serious: No
  Sender: FDA-Public Use
  Company Number: US-AMGEN-KDL342193

PATIENT
  Sex: Female
  Weight: 68.6 kg

DRUGS (9)
  1. ENBREL [Suspect]
     Indication: RHEUMATOID ARTHRITIS
     Dates: start: 20090213, end: 20090403
  2. CALCIUM [Concomitant]
  3. EFFEXOR [Concomitant]
  4. CRESTOR [Concomitant]
  5. BONIVA [Concomitant]
  6. PLAQUENIL [Concomitant]
  7. METHOTREXATE [Concomitant]
     Dates: end: 20090406
  8. FOLIC ACID [Concomitant]
     Dates: end: 20090406
  9. ARAVA [Concomitant]

REACTIONS (8)
  - INJECTION SITE ERYTHEMA [None]
  - INJECTION SITE HAEMATOMA [None]
  - INJECTION SITE MASS [None]
  - INJECTION SITE PAIN [None]
  - INJECTION SITE PRURITUS [None]
  - INJECTION SITE REACTION [None]
  - INJECTION SITE SWELLING [None]
  - OSTEOARTHRITIS [None]
